FAERS Safety Report 8708337 (Version 2)
Quarter: 2013Q4

REPORT INFORMATION
  Report Type: Spontaneous
  Country: US (occurrence: US)
  Receive Date: 20120806
  Receipt Date: 20131101
  Transmission Date: 20140711
  Serious: No
  Sender: FDA-Public Use
  Company Number: US-009507513-1207USA001640

PATIENT
  Age: 57 Year
  Sex: Female

DRUGS (8)
  1. VICTRELIS [Suspect]
     Dosage: 800 MG, TID
     Route: 048
  2. PEGASYS [Concomitant]
  3. LISINOPRIL [Concomitant]
     Dosage: 10 MG, UNK
  4. REBETOL [Concomitant]
     Dosage: 200 MG, UNK
  5. VITAMINS (UNSPECIFIED) [Concomitant]
  6. ADVIL [Concomitant]
     Dosage: 200 MG, UNK
  7. EXCEDRIN (ACETAMINOPHEN (+) ASPIRIN (+) CAFFEINE) [Concomitant]
  8. PROCRIT [Concomitant]
     Dosage: 10000 / ML

REACTIONS (1)
  - Dysgeusia [Unknown]
